FAERS Safety Report 11962549 (Version 1)
Quarter: 2016Q1

REPORT INFORMATION
  Report Type: Report from Study
  Country: US (occurrence: US)
  Receive Date: 20160126
  Receipt Date: 20160126
  Transmission Date: 20160526
  Serious: No
  Sender: FDA-Public Use
  Company Number: US-ABBVIE-15K-163-1355992-00

PATIENT
  Sex: Female

DRUGS (3)
  1. HUMIRA [Suspect]
     Active Substance: ADALIMUMAB
     Indication: PSORIASIS
     Route: 065
     Dates: start: 20141224, end: 20141224
  2. HUMIRA [Suspect]
     Active Substance: ADALIMUMAB
     Dosage: IN ONE WEEK
     Route: 065
     Dates: start: 20141231, end: 20141231
  3. HUMIRA [Suspect]
     Active Substance: ADALIMUMAB
     Dosage: EVERY
     Route: 065
     Dates: start: 201501

REACTIONS (2)
  - Nasopharyngitis [Unknown]
  - Viral infection [Unknown]
